FAERS Safety Report 24682518 (Version 1)
Quarter: 2024Q4

REPORT INFORMATION
  Report Type: Spontaneous
  Country: US (occurrence: US)
  Receive Date: 20241130
  Receipt Date: 20241130
  Transmission Date: 20250115
  Serious: Yes (Hospitalization)
  Sender: SANOFI AVENTIS
  Company Number: US-SA-2024SA345542

PATIENT
  Sex: Female
  Weight: 72.1 kg

DRUGS (2)
  1. DUPIXENT [Suspect]
     Active Substance: DUPILUMAB
     Indication: Asthma
     Dosage: 300MG,QOW
     Route: 058
     Dates: start: 202001
  2. ASPIRIN [Concomitant]
     Active Substance: ASPIRIN
     Dosage: DECREASED HER ASPIRIN TO 2 TIMES A WEEK

REACTIONS (5)
  - Heart rate decreased [Recovering/Resolving]
  - Contusion [Recovering/Resolving]
  - COVID-19 [Recovering/Resolving]
  - Ligament rupture [Recovering/Resolving]
  - Sinus disorder [Not Recovered/Not Resolved]
